FAERS Safety Report 5739900-9 (Version None)
Quarter: 2008Q2

REPORT INFORMATION
  Report Type: 
  Country: None (occurrence: None)
  Receive Date: 20080516
  Receipt Date: 20080505
  Transmission Date: 20081010
  Serious: Yes (Hospitalization)
  Sender: FDA-Public Use
  Company Number: FR-JNJFOC-20080501837

PATIENT
  Age: 10 Year

DRUGS (4)
  1. EPITOMAX [Suspect]
     Route: 048
  2. EPITOMAX [Suspect]
     Indication: EPILEPSY
     Route: 048
  3. CLONAZEPAM [Concomitant]
     Indication: EPILEPSY
  4. VIGABATRIN [Concomitant]
     Indication: EPILEPSY

REACTIONS (20)
  - ANHIDROSIS [None]
  - ANURIA [None]
  - CIRCULATORY COLLAPSE [None]
  - CONVULSION [None]
  - CYTOLYTIC HEPATITIS [None]
  - DEHYDRATION [None]
  - DISSEMINATED INTRAVASCULAR COAGULATION [None]
  - EPISTAXIS [None]
  - HAEMATEMESIS [None]
  - HEAT STROKE [None]
  - HYPERTHERMIA [None]
  - INFLAMMATION [None]
  - LEUKOCYTOSIS [None]
  - PALLOR [None]
  - PURPURA [None]
  - RENAL FAILURE [None]
  - RHABDOMYOLYSIS [None]
  - SEPTIC SHOCK [None]
  - STUPOR [None]
  - TACHYPNOEA [None]
